FAERS Safety Report 4872018-6 (Version None)
Quarter: 2006Q1

REPORT INFORMATION
  Report Type: 
  Country: None (occurrence: None)
  Receive Date: 20060104
  Receipt Date: 20051227
  Transmission Date: 20060701
  Serious: Yes (Hospitalization)
  Sender: FDA-Public Use
  Company Number: JP-JNJFOC-20050902644

PATIENT
  Sex: Female
  Weight: 62 kg

DRUGS (30)
  1. REMICADE [Suspect]
     Route: 042
  2. REMICADE [Suspect]
     Route: 042
  3. REMICADE [Suspect]
     Indication: RHEUMATOID ARTHRITIS
     Route: 042
  4. RIDAURA [Suspect]
     Indication: RHEUMATOID ARTHRITIS
     Route: 048
  5. PREDNISOLONE [Suspect]
     Indication: RHEUMATOID ARTHRITIS
     Route: 048
  6. AZULFIDINE EN-TABS [Suspect]
     Indication: RHEUMATOID ARTHRITIS
     Route: 048
  7. RHEUMATREX [Suspect]
     Route: 048
  8. RHEUMATREX [Suspect]
     Route: 048
  9. RHEUMATREX [Suspect]
     Route: 048
  10. RHEUMATREX [Suspect]
     Indication: RHEUMATOID ARTHRITIS
     Route: 048
  11. RINDERON [Concomitant]
     Indication: RHEUMATOID ARTHRITIS
     Route: 048
  12. VOLTAREN [Concomitant]
     Indication: RHEUMATOID ARTHRITIS
     Route: 048
  13. FOLIAMIN [Concomitant]
     Route: 048
  14. LEUCOVORIN CALCIUM [Concomitant]
     Route: 048
  15. CYTOTEC [Concomitant]
     Dosage: ^400 RG^ DAILY
     Route: 048
  16. JUVELA NICOTINATE [Concomitant]
     Route: 048
  17. CYANOCOBALAMIN [Concomitant]
     Dosage: ^250 RG^, DAILY
     Route: 048
  18. HALCION [Concomitant]
     Route: 048
  19. EVAMYL [Concomitant]
     Route: 048
  20. GASTER [Concomitant]
     Route: 048
  21. ALLOID G [Concomitant]
     Dosage: ^OPTIMAL DOSE^
     Route: 048
  22. MYSLEE [Concomitant]
     Route: 048
  23. BENET [Concomitant]
     Indication: PROPHYLAXIS
     Route: 048
  24. FERROMIA [Concomitant]
     Route: 048
  25. ADRENAL HORMONE PREPARATIONS [Concomitant]
     Indication: RHEUMATOID ARTHRITIS
     Route: 048
  26. RHEUMATREX [Concomitant]
     Route: 048
  27. RHEUMATREX [Concomitant]
     Route: 048
  28. RHEUMATREX [Concomitant]
     Route: 048
  29. RHEUMATREX [Concomitant]
     Route: 048
  30. POLAPREZINC [Concomitant]
     Dosage: ^OPTIMAL DOSE^
     Route: 048

REACTIONS (1)
  - TUBERCULOUS PLEURISY [None]
